FAERS Safety Report 10174179 (Version 1)
Quarter: 2014Q2

REPORT INFORMATION
  Report Type: Spontaneous
  Country: US (occurrence: None)
  Receive Date: 20140514
  Receipt Date: 20140514
  Transmission Date: 20141212
  Serious: Yes (Other)
  Sender: FDA-Public Use
  Company Number: None

PATIENT
  Age: 65 Year
  Sex: Female

DRUGS (7)
  1. AFINITOR [Suspect]
     Indication: BREAST CANCER
     Route: 048
     Dates: start: 20140324
  2. CALCIUM [Concomitant]
  3. ALEVE [Concomitant]
  4. VITAMIN D [Concomitant]
  5. NORVASC [Concomitant]
  6. AROMASIN [Concomitant]
  7. PRILOSEC OTC [Concomitant]

REACTIONS (1)
  - Liver function test abnormal [None]
